FAERS Safety Report 4400584-3 (Version None)
Quarter: 2004Q2

REPORT INFORMATION
  Report Type: 
  Country: None (occurrence: None)
  Receive Date: 20040618
  Receipt Date: 20040517
  Transmission Date: 20050107
  Serious: No
  Sender: FDA-Public Use
  Company Number: US-JNJFOC-20040300449

PATIENT
  Age: 30 Year
  Sex: Female
  Weight: 79.3795 kg

DRUGS (4)
  1. ORTHO EVRA [Suspect]
     Indication: CONTRACEPTION
     Dosage: 1 DOSE (S), 3 IN 4 WEEK, TRANSDERMAL
     Route: 062
     Dates: start: 20030401
  2. ZOLOFT (UNSPECIFIED) SERTRALINE HYDROCHLORIDE [Concomitant]
  3. ALBUTEROL (UNSPECIFIED) SALBUTAMOL [Concomitant]
  4. PRENATAL VITAMINS (PRENATAL VITAMINS) [Concomitant]

REACTIONS (3)
  - LIBIDO INCREASED [None]
  - MENOMETRORRHAGIA [None]
  - MOOD ALTERED [None]
